FAERS Safety Report 6007724-3 (Version None)
Quarter: 2008Q4

REPORT INFORMATION
  Report Type: 
  Country: None (occurrence: None)
  Receive Date: 20081217
  Receipt Date: 20080521
  Transmission Date: 20090506
  Serious: No
  Sender: FDA-Public Use
  Company Number: US-ASTRAZENECA-2008UW10453

PATIENT
  Age: 54 Year
  Sex: Male
  Weight: 93 kg

DRUGS (11)
  1. CRESTOR [Suspect]
     Indication: STENT PLACEMENT
     Route: 048
     Dates: end: 20071001
  2. COUMADIN [Concomitant]
  3. HYDROCHLOROTHIAZIDE [Concomitant]
  4. SPIRONOLACTONE [Concomitant]
  5. COREG [Concomitant]
  6. TORSEMIDE [Concomitant]
  7. CALCIUM CARBONATE [Concomitant]
  8. OMEPRAZOLE [Concomitant]
     Route: 048
  9. MULTI-VITAMIN [Concomitant]
  10. DIGOXIN [Concomitant]
  11. ASPIRIN [Concomitant]

REACTIONS (4)
  - BLOOD PRESSURE FLUCTUATION [None]
  - DIZZINESS [None]
  - INTERNATIONAL NORMALISED RATIO FLUCTUATION [None]
  - ORTHOSTATIC HYPOTENSION [None]
